FAERS Safety Report 18033545 (Version 5)
Quarter: 2020Q4

REPORT INFORMATION
  Report Type: Report from Study
  Country: JP (occurrence: JP)
  Receive Date: 20200716
  Receipt Date: 20201106
  Transmission Date: 20210113
  Serious: Yes (Hospitalization, Other)
  Sender: FDA-Public Use
  Company Number: JP-AMGEN-JPNNI2018179791

PATIENT
  Age: 26 Year
  Sex: Female

DRUGS (32)
  1. BLINATUMOMAB [Suspect]
     Active Substance: BLINATUMOMAB
     Indication: B PRECURSOR TYPE ACUTE LEUKAEMIA
     Dosage: 5 MICROGRAM/SQ. METER, QD
     Route: 041
     Dates: start: 20181210, end: 20181216
  2. DEXAMETHASONE. [Concomitant]
     Active Substance: DEXAMETHASONE
     Indication: ERYTHEMA
     Dosage: 6.6 MILLIGRAM
     Dates: start: 20181211, end: 20181217
  3. PROPOFOL. [Concomitant]
     Active Substance: PROPOFOL
     Indication: PROPHYLAXIS
     Dosage: UNK
     Dates: start: 20190117, end: 20190117
  4. FLUCONAZOLE. [Suspect]
     Active Substance: FLUCONAZOLE
     Indication: PROPHYLAXIS
     Dosage: UNK
     Route: 065
  5. ETOPOSIDE. [Concomitant]
     Active Substance: ETOPOSIDE
  6. DEXAMETHASONE. [Concomitant]
     Active Substance: DEXAMETHASONE
     Indication: PROPHYLAXIS
  7. VICCLOX [ACICLOVIR] [Concomitant]
     Active Substance: ACYCLOVIR
     Indication: PROPHYLAXIS
     Dosage: UNK
     Dates: end: 20190228
  8. CETROTIDE [Concomitant]
     Active Substance: CETRORELIX ACETATE
     Indication: PROPHYLAXIS
     Dosage: UNK
     Dates: start: 20190111, end: 20190115
  9. PREDNISOLONE. [Concomitant]
     Active Substance: PREDNISOLONE
     Indication: PROPHYLAXIS
     Dosage: UNK
     Dates: start: 20190122, end: 20190122
  10. NEXIUM [Concomitant]
     Active Substance: ESOMEPRAZOLE MAGNESIUM
     Indication: PROPHYLAXIS
     Dosage: UNK
  11. METHOTREXATE. [Concomitant]
     Active Substance: METHOTREXATE
     Indication: PROPHYLAXIS
     Dosage: UNK
     Dates: start: 20190122, end: 20190122
  12. VICCILLIN [AMPICILLIN] [Concomitant]
     Active Substance: AMPICILLIN
     Indication: PROPHYLAXIS
     Dosage: UNK
     Dates: start: 20190117, end: 20190117
  13. CYCLOPHOSPHAMIDE. [Concomitant]
     Active Substance: CYCLOPHOSPHAMIDE
  14. DEXAMETHASONE. [Concomitant]
     Active Substance: DEXAMETHASONE
     Indication: OEDEMA
     Dosage: UNK
     Route: 065
     Dates: start: 20190122, end: 20190128
  15. DEXAMETHASONE. [Concomitant]
     Active Substance: DEXAMETHASONE
     Indication: HYPERAEMIA
  16. DEXAMETHASONE. [Concomitant]
     Active Substance: DEXAMETHASONE
     Indication: HOT FLUSH
  17. BIOFERMIN R [Concomitant]
     Active Substance: DIETARY SUPPLEMENT\PROBIOTICS
     Indication: PROPHYLAXIS
     Dosage: UNK
     Dates: end: 20181213
  18. HMG [Concomitant]
     Active Substance: GONADOTROPHIN, CHORIONIC
     Indication: PROPHYLAXIS
     Dosage: UNK
     Dates: start: 20190107, end: 20190115
  19. SOSEGON [PENTAZOCINE] [Concomitant]
     Active Substance: PENTAZOCINE
     Indication: PROPHYLAXIS
     Dosage: UNK
     Dates: start: 20190117, end: 20190117
  20. CEFDINIR. [Concomitant]
     Active Substance: CEFDINIR
     Indication: PROPHYLAXIS
     Dosage: UNK
     Dates: start: 20190115, end: 20190116
  21. DEXAMETHASONE. [Concomitant]
     Active Substance: DEXAMETHASONE
     Indication: WEIGHT INCREASED
     Dosage: 16.5 MILLIGRAM
     Dates: start: 20181210
  22. DEXAMETHASONE. [Concomitant]
     Active Substance: DEXAMETHASONE
     Indication: CONJUNCTIVAL HYPERAEMIA
  23. DEXAMETHASONE. [Concomitant]
     Active Substance: DEXAMETHASONE
     Indication: ARTHRALGIA
  24. DUPHASTON [Concomitant]
     Active Substance: DYDROGESTERONE
     Indication: PROPHYLAXIS
     Dosage: UNK
     Dates: start: 20190115, end: 20190128
  25. SUPRECUR MP [Concomitant]
     Indication: PROPHYLAXIS
     Dosage: UNK
     Route: 058
     Dates: start: 20181225, end: 20181225
  26. BLINATUMOMAB [Suspect]
     Active Substance: BLINATUMOMAB
     Dosage: 15 MICROGRAM/SQ. METER, QD
     Route: 041
     Dates: start: 20181217, end: 20190107
  27. BLINATUMOMAB [Suspect]
     Active Substance: BLINATUMOMAB
     Dosage: 15 MICROGRAM/SQ. METER, QD
     Route: 041
     Dates: start: 20190122, end: 20190207
  28. SALINE [Concomitant]
     Active Substance: SODIUM CHLORIDE
     Dosage: UNK
  29. DEXAMETHASONE. [Concomitant]
     Active Substance: DEXAMETHASONE
     Indication: PYREXIA
  30. DAIPHEN [Concomitant]
     Active Substance: SULFAMETHOXAZOLE\TRIMETHOPRIM
     Indication: PROPHYLAXIS
     Dosage: UNK
     Dates: end: 20190228
  31. GONADOTROPIN [Concomitant]
     Active Substance: CHORIOGONADOTROPIN ALFA
     Indication: PROPHYLAXIS
     Dosage: UNK
     Dates: start: 20190115, end: 20190115
  32. CYTARABINE. [Concomitant]
     Active Substance: CYTARABINE
     Indication: PROPHYLAXIS
     Dosage: UNK
     Dates: start: 20190122, end: 20190122

REACTIONS (20)
  - Immunoglobulins decreased [Recovering/Resolving]
  - White blood cell count decreased [Recovering/Resolving]
  - Arthralgia [Recovered/Resolved]
  - Weight increased [Recovered/Resolved]
  - Erythema [Recovered/Resolved]
  - Hypokalaemia [Recovered/Resolved]
  - Conjunctival hyperaemia [Recovered/Resolved]
  - Conjunctival hyperaemia [Recovered/Resolved]
  - Lymphocyte morphology abnormal [Recovered/Resolved]
  - Neutrophil count decreased [Recovered/Resolved]
  - Cytokine release syndrome [Recovered/Resolved]
  - Myalgia [Recovered/Resolved]
  - Erythema [Recovered/Resolved]
  - White blood cell count decreased [Recovered/Resolved]
  - Neutrophil count decreased [Recovered/Resolved]
  - Vascular device infection [Recovered/Resolved]
  - Malaise [Recovered/Resolved]
  - Arthralgia [Recovered/Resolved]
  - Cytokine release syndrome [Recovered/Resolved]
  - Hot flush [Recovered/Resolved]

NARRATIVE: CASE EVENT DATE: 20181210
